FAERS Safety Report 10058541 (Version 2)
Quarter: 2014Q2

REPORT INFORMATION
  Report Type: Spontaneous
  Country: US (occurrence: US)
  Receive Date: 20140404
  Receipt Date: 20140529
  Transmission Date: 20141212
  Serious: Yes (Hospitalization, Other)
  Sender: FDA-Public Use
  Company Number: US-AMGEN-USASP2014023573

PATIENT
  Age: 61 Year
  Sex: Female

DRUGS (2)
  1. ENBREL [Suspect]
     Indication: RHEUMATOID ARTHRITIS
     Dosage: 50 MG, QWK
     Route: 065
     Dates: start: 20050104, end: 20140424
  2. METHOTREXATE [Concomitant]
     Dosage: UNK

REACTIONS (14)
  - Upper limb fracture [Recovered/Resolved]
  - Haemorrhage [Not Recovered/Not Resolved]
  - Back pain [Recovered/Resolved]
  - Fall [Not Recovered/Not Resolved]
  - Pneumonia [Recovered/Resolved]
  - Nasal congestion [Not Recovered/Not Resolved]
  - Rhinorrhoea [Not Recovered/Not Resolved]
  - Pyrexia [Recovered/Resolved]
  - Pain [Not Recovered/Not Resolved]
  - Musculoskeletal pain [Not Recovered/Not Resolved]
  - Pain in extremity [Not Recovered/Not Resolved]
  - Hypokinesia [Not Recovered/Not Resolved]
  - Osteoarthritis [Recovered/Resolved]
  - Injection site pain [Recovered/Resolved]
